FAERS Safety Report 6572891-X (Version None)
Quarter: 2010Q1

REPORT INFORMATION
  Report Type: 
  Country: None (occurrence: None)
  Receive Date: 20100207
  Receipt Date: 20100204
  Transmission Date: 20100710
  Serious: Yes (Life-Threatening, Hospitalization)
  Sender: FDA-Public Use
  Company Number: DK-MERCK-1001DNK00001

PATIENT
  Age: 56 Year
  Sex: Female

DRUGS (6)
  1. ZETIA [Suspect]
     Indication: BLOOD CHOLESTEROL
     Route: 048
     Dates: start: 20090101, end: 20091218
  2. METFORMIN [Suspect]
     Indication: DIABETES MELLITUS
     Route: 048
     Dates: start: 20090901, end: 20091218
  3. CORODIL [Suspect]
     Indication: HYPERTENSION
     Route: 048
     Dates: start: 20090101, end: 20091218
  4. DIAZEPAM [Concomitant]
     Route: 048
  5. VITAMIN D (UNSPECIFIED) [Concomitant]
     Route: 065
  6. VOLTAREN [Concomitant]
     Route: 048

REACTIONS (2)
  - AZOTAEMIA [None]
  - LACTIC ACIDOSIS [None]
